FAERS Safety Report 11219295 (Version 1)
Quarter: 2015Q2

REPORT INFORMATION
  Report Type: Spontaneous
  Country: TW (occurrence: TW)
  Receive Date: 20150625
  Receipt Date: 20150625
  Transmission Date: 20150821
  Serious: Yes (Other)
  Sender: FDA-Public Use
  Company Number: TW-CIPLA LTD.-2015TW04790

PATIENT

DRUGS (2)
  1. CISPLATIN. [Suspect]
     Active Substance: CISPLATIN
     Indication: NASOPHARYNGEAL CANCER RECURRENT
     Dosage: 75 MG/M2, ON DAY 1 AT A 3-WEEK INTERVAL
     Route: 042
  2. GEMCITABINE [Suspect]
     Active Substance: GEMCITABINE\GEMCITABINE HYDROCHLORIDE
     Indication: NASOPHARYNGEAL CANCER RECURRENT
     Dosage: 1250 MG/M2, OVER 30 MIN ON DAYS 1 AND 8 AT A 3-WEEK INTERVAL
     Route: 042

REACTIONS (1)
  - Mucous membrane disorder [Unknown]
